FAERS Safety Report 21596289 (Version 2)
Quarter: 2022Q4

REPORT INFORMATION
  Report Type: Report from Study
  Country: NL (occurrence: NL)
  Receive Date: 20221115
  Receipt Date: 20221118
  Transmission Date: 20230113
  Serious: Yes (Hospitalization)
  Sender: FDA-Public Use
  Company Number: NL-JNJFOC-20221114548

PATIENT
  Age: 72 Year
  Sex: Female
  Weight: 52 kg

DRUGS (4)
  1. TECLISTAMAB [Suspect]
     Active Substance: TECLISTAMAB
     Indication: Plasma cell myeloma
     Dosage: 1ST PRIMING DOSE?MEDICATION KIT NO: 705851
     Route: 058
     Dates: start: 20221017, end: 20221017
  2. TECLISTAMAB [Suspect]
     Active Substance: TECLISTAMAB
     Dosage: 2ND PRIMING DOSE
     Route: 058
     Dates: start: 20221020, end: 20221020
  3. TECLISTAMAB [Suspect]
     Active Substance: TECLISTAMAB
     Dosage: C1D1
     Route: 058
     Dates: start: 20221024
  4. TECLISTAMAB [Suspect]
     Active Substance: TECLISTAMAB
     Dosage: C1D1
     Route: 058
     Dates: start: 20221101, end: 20221101

REACTIONS (2)
  - Motor dysfunction [Recovered/Resolved with Sequelae]
  - Paraesthesia [Recovered/Resolved with Sequelae]

NARRATIVE: CASE EVENT DATE: 20221103
